FAERS Safety Report 17841554 (Version 17)
Quarter: 2022Q3

REPORT INFORMATION
  Report Type: Spontaneous
  Country: GB (occurrence: GB)
  Receive Date: 20200529
  Receipt Date: 20220909
  Transmission Date: 20221026
  Serious: Yes (Death, Hospitalization, Other)
  Sender: FDA-Public Use
  Company Number: GB-MYLANLABS-2019M1117808

PATIENT
  Age: 59 Year
  Sex: Male
  Weight: 62 kg

DRUGS (152)
  1. LORAZEPAM [Suspect]
     Active Substance: LORAZEPAM
     Indication: Schizophrenia
     Route: 048
  2. LORAZEPAM [Suspect]
     Active Substance: LORAZEPAM
     Route: 048
  3. LORAZEPAM [Suspect]
     Active Substance: LORAZEPAM
     Route: 048
  4. LORAZEPAM [Suspect]
     Active Substance: LORAZEPAM
     Route: 048
  5. LORAZEPAM [Suspect]
     Active Substance: LORAZEPAM
     Route: 048
  6. LORAZEPAM [Suspect]
     Active Substance: LORAZEPAM
     Route: 048
  7. LORAZEPAM [Suspect]
     Active Substance: LORAZEPAM
     Route: 048
  8. LORAZEPAM [Suspect]
     Active Substance: LORAZEPAM
     Route: 048
  9. LORAZEPAM [Suspect]
     Active Substance: LORAZEPAM
     Route: 048
  10. HALOPERIDOL [Suspect]
     Active Substance: HALOPERIDOL
     Indication: Schizophrenia
     Route: 048
  11. HALOPERIDOL [Suspect]
     Active Substance: HALOPERIDOL
     Dosage: 10 MILLIGRAM, BID
     Route: 048
  12. HALOPERIDOL [Suspect]
     Active Substance: HALOPERIDOL
     Dosage: 20 MILLIGRAM, BID (10 MILLIGRAM, BID )
     Route: 048
  13. HALOPERIDOL [Suspect]
     Active Substance: HALOPERIDOL
     Dosage: 5 MILLIGRAM, BID
     Route: 065
  14. HALOPERIDOL [Suspect]
     Active Substance: HALOPERIDOL
     Dosage: 5 MILLIGRAM, QD (5 MILLIGRAM, ONCE A DAY)
     Route: 048
  15. HALOPERIDOL [Suspect]
     Active Substance: HALOPERIDOL
     Dosage: 10 MILLIGRAM, QD
     Route: 048
  16. HALOPERIDOL [Suspect]
     Active Substance: HALOPERIDOL
     Dosage: 20 MILLIGRAM, QD
     Route: 048
  17. HALOPERIDOL [Suspect]
     Active Substance: HALOPERIDOL
     Dosage: 10 MILLIGRAM, QD (5 MG, BID)
     Route: 048
  18. HALOPERIDOL [Suspect]
     Active Substance: HALOPERIDOL
     Dosage: 5 MILLIGRAM, BID
     Route: 065
  19. HALOPERIDOL [Suspect]
     Active Substance: HALOPERIDOL
     Dosage: 40 MILLIGRAM, QD (20 MG, BID)
     Route: 048
  20. RISPERDAL [Suspect]
     Active Substance: RISPERIDONE
     Indication: Schizophrenia
     Dosage: 6 MILLIGRAM, QD (3 MG, 2X/DAY)
     Route: 048
  21. RISPERDAL [Suspect]
     Active Substance: RISPERIDONE
     Dosage: 4 MILLIGRAM, QD (2 MG, 2X/DAY)
     Route: 065
  22. RISPERDAL [Suspect]
     Active Substance: RISPERIDONE
     Dosage: 1 GRAM, QD
     Route: 065
  23. RISPERDAL [Suspect]
     Active Substance: RISPERIDONE
     Dosage: 2 MILLIGRAM, BID
     Route: 065
  24. RISPERDAL [Suspect]
     Active Substance: RISPERIDONE
     Dosage: 1 MILLIGRAM QD
     Route: 065
  25. RISPERDAL [Suspect]
     Active Substance: RISPERIDONE
     Dosage: 3 MILLIGRAM, BID
     Route: 065
  26. RISPERDAL [Suspect]
     Active Substance: RISPERIDONE
     Dosage: 6 MILLIGRAM QD
     Route: 065
  27. RISPERDAL [Suspect]
     Active Substance: RISPERIDONE
     Dosage: 2 MILLIGRAM, BID
     Route: 065
  28. RISPERDAL [Suspect]
     Active Substance: RISPERIDONE
     Dosage: 6 MILLIGRAM, QD (3 MILLIGRAM, BID )
     Route: 065
  29. RISPERDAL [Suspect]
     Active Substance: RISPERIDONE
     Dosage: 6 MILLIGRAM, QD (3 MILLIGRAM, BID )
     Route: 065
  30. RISPERDAL [Suspect]
     Active Substance: RISPERIDONE
     Dosage: 6 MILLIGRAM, QD (3 MILLIGRAM, BID )
     Route: 065
  31. RISPERDAL [Suspect]
     Active Substance: RISPERIDONE
     Dosage: 6 MILLIGRAM, QD (3 MILLIGRAM, BID )
     Route: 065
  32. LITHIUM [Suspect]
     Active Substance: LITHIUM
     Indication: Product used for unknown indication
     Route: 065
  33. LITHIUM [Suspect]
     Active Substance: LITHIUM
     Dosage: 2 G, UNKNOWN
     Route: 065
  34. LITHIUM [Suspect]
     Active Substance: LITHIUM
     Route: 065
  35. LITHIUM [Suspect]
     Active Substance: LITHIUM
     Dosage: 6 MILLIGRAM, QD ONCE A DAY
     Route: 065
  36. LITHIUM [Suspect]
     Active Substance: LITHIUM
     Route: 065
  37. LITHIUM [Suspect]
     Active Substance: LITHIUM
     Route: 048
  38. CLOZARIL [Suspect]
     Active Substance: CLOZAPINE
     Indication: Schizophrenia
     Dosage: 400 MILLIGRAM, QD (400 MG, DAILY)
     Route: 048
     Dates: start: 20100823
  39. CLOZARIL [Suspect]
     Active Substance: CLOZAPINE
     Dosage: 300 MILLIGRAM, PM
  40. CLOZARIL [Suspect]
     Active Substance: CLOZAPINE
     Dosage: 275 MILLIGRAM, QD (275 MILLIGRAM, PM)
     Route: 065
  41. CLOZARIL [Suspect]
     Active Substance: CLOZAPINE
     Dosage: 400 MILLIGRAM, QD (200 MILLIGRAM, BID OFF LABEL USE)
     Route: 065
  42. CLOZARIL [Suspect]
     Active Substance: CLOZAPINE
     Dosage: 100 MILLIGRAM, AM
     Route: 065
  43. CLOZARIL [Suspect]
     Active Substance: CLOZAPINE
     Dosage: UNK UNK, AM (1 ONCE A DAY (AM)
     Route: 065
     Dates: start: 2011
  44. CLOZARIL [Suspect]
     Active Substance: CLOZAPINE
     Dosage: 200 MILLIGRAM, BID
     Route: 048
     Dates: start: 20191209, end: 20191223
  45. CLOZARIL [Suspect]
     Active Substance: CLOZAPINE
     Dosage: 50 MILLIGRAM, QD (50 MILLIGRAM MIDDAY
     Route: 065
  46. CLOZARIL [Suspect]
     Active Substance: CLOZAPINE
     Dosage: UNK
     Route: 048
     Dates: start: 20200521, end: 2020
  47. CLOZARIL [Suspect]
     Active Substance: CLOZAPINE
     Dosage: UNK
     Route: 048
     Dates: start: 20201207
  48. CLOZARIL [Suspect]
     Active Substance: CLOZAPINE
     Dosage: UNK
     Route: 065
     Dates: start: 20201223, end: 20201223
  49. CLOZARIL [Suspect]
     Active Substance: CLOZAPINE
     Dosage: 200 MILLIGRAM, BID 400 MILLIGRAM, QD
     Route: 065
     Dates: start: 20191209, end: 20191223
  50. CLOZARIL [Suspect]
     Active Substance: CLOZAPINE
     Dosage: 100 MILLIGRAM, QD, AM
     Route: 065
  51. CLOZARIL [Suspect]
     Active Substance: CLOZAPINE
     Dosage: 400 MILLIGRAM, QD (400 MG, DAILY)
     Route: 048
     Dates: start: 20191223, end: 20191223
  52. CLOZARIL [Suspect]
     Active Substance: CLOZAPINE
     Dosage: 400 MILLIGRAM, QD (400 MG, DAILY)
     Route: 048
     Dates: start: 20201207
  53. CLOZARIL [Suspect]
     Active Substance: CLOZAPINE
     Dosage: 275 MILLIGRAM, QD
     Route: 048
     Dates: start: 20200521, end: 2020
  54. CLOZARIL [Suspect]
     Active Substance: CLOZAPINE
     Dosage: 21/MAY/2020
     Route: 048
     Dates: end: 2021
  55. CLOZARIL [Suspect]
     Active Substance: CLOZAPINE
     Dosage: 245 MILLIGRAM, QD, 1 ONCE A DAY (AM)2011
     Route: 065
     Dates: start: 2011
  56. CLOZARIL [Suspect]
     Active Substance: CLOZAPINE
     Dosage: 245 MILLIGRAM,
     Route: 065
     Dates: start: 20191209, end: 20191223
  57. CLOZARIL [Suspect]
     Active Substance: CLOZAPINE
     Dosage: 400 MILLIGRAM, QD ((200 MILLIGRAM, TWO TIMES A DAY)
     Route: 065
     Dates: start: 20191209, end: 20191223
  58. CLOZARIL [Suspect]
     Active Substance: CLOZAPINE
     Route: 065
     Dates: start: 20191209, end: 20191223
  59. CLOZARIL [Suspect]
     Active Substance: CLOZAPINE
     Route: 048
  60. CLOZARIL [Suspect]
     Active Substance: CLOZAPINE
     Dosage: 1 DOSAGE FORM, AM/ START DATE: 2011
     Route: 048
  61. CLOZARIL [Suspect]
     Active Substance: CLOZAPINE
     Dosage: UNK UNK, AM/2011
     Route: 065
  62. CLOZARIL [Suspect]
     Active Substance: CLOZAPINE
     Dosage: 245 MILLIGRAM, QD (245 MILLIGRAM, DAILY)
     Route: 048
     Dates: start: 20191209
  63. CLOZARIL [Suspect]
     Active Substance: CLOZAPINE
     Dosage: 50 MILLIGRAM, QD (50 MG, DAILY)
     Route: 048
     Dates: start: 20191209, end: 20191223
  64. CLOZARIL [Suspect]
     Active Substance: CLOZAPINE
     Dosage: 245 MILLIGRAM/21/MAY/2020
     Route: 048
     Dates: start: 20200521
  65. CLOZARIL [Suspect]
     Active Substance: CLOZAPINE
     Dosage: 6000 MILLIGRAM/ START DATE:23/AUG/2010
     Route: 048
     Dates: start: 20100521, end: 20100521
  66. CLOZARIL [Suspect]
     Active Substance: CLOZAPINE
     Dosage: 200 MILLIGRAM, BID (200 MILLIGRAM, TWO TIMES A DAY)
     Route: 048
  67. CLOZARIL [Suspect]
     Active Substance: CLOZAPINE
     Dosage: 23/AUG/2010
     Route: 048
     Dates: start: 20100823
  68. CLOZARIL [Suspect]
     Active Substance: CLOZAPINE
     Route: 048
     Dates: start: 20191209, end: 20191223
  69. CLOZARIL [Suspect]
     Active Substance: CLOZAPINE
     Dosage: 400 MILLIGRAM, QD (200 MILLIGRAM, BID OFF LABEL USE)
     Route: 065
  70. CLOZARIL [Suspect]
     Active Substance: CLOZAPINE
     Dosage: 400 MILLIGRAM, QD (200 MILLIGRAM, BID)
     Route: 048
  71. CLOZARIL [Suspect]
     Active Substance: CLOZAPINE
     Dosage: 07/DEC/2020
     Route: 048
     Dates: start: 20201207
  72. CLOZARIL [Suspect]
     Active Substance: CLOZAPINE
     Dosage: 245 MILLIGRAM/07-DEC-2019
     Route: 048
     Dates: end: 20191207
  73. CLOZARIL [Suspect]
     Active Substance: CLOZAPINE
     Dosage: 200 MILLIGRAM, BID/09-DEC-2019
     Route: 048
     Dates: end: 20191223
  74. CLOZARIL [Suspect]
     Active Substance: CLOZAPINE
     Dosage: 245 MILLIGRAM, QD (245 MILLIGRAM, DAILY)/09/DEC/2019
     Route: 048
     Dates: end: 20191223
  75. CLOZARIL [Suspect]
     Active Substance: CLOZAPINE
     Route: 048
     Dates: end: 20191223
  76. CLOZARIL [Suspect]
     Active Substance: CLOZAPINE
     Dosage: 21/MAY/2020
     Route: 048
  77. CLOZARIL [Suspect]
     Active Substance: CLOZAPINE
     Route: 048
     Dates: start: 20100823, end: 20100823
  78. OLANZAPINE [Suspect]
     Active Substance: OLANZAPINE
     Indication: Schizophrenia
     Route: 065
     Dates: start: 20040217
  79. OLANZAPINE [Suspect]
     Active Substance: OLANZAPINE
     Route: 065
     Dates: start: 20060704
  80. OLANZAPINE [Suspect]
     Active Substance: OLANZAPINE
     Route: 065
     Dates: start: 20080823
  81. OLANZAPINE [Suspect]
     Active Substance: OLANZAPINE
     Route: 065
  82. OLANZAPINE [Suspect]
     Active Substance: OLANZAPINE
     Route: 065
  83. OLANZAPINE [Suspect]
     Active Substance: OLANZAPINE
     Route: 065
  84. ARIPIPRAZOLE [Suspect]
     Active Substance: ARIPIPRAZOLE
     Indication: Schizophrenia
     Route: 065
  85. ARIPIPRAZOLE [Suspect]
     Active Substance: ARIPIPRAZOLE
     Route: 065
  86. ARIPIPRAZOLE [Suspect]
     Active Substance: ARIPIPRAZOLE
     Route: 065
  87. ARIPIPRAZOLE [Suspect]
     Active Substance: ARIPIPRAZOLE
     Route: 065
  88. ARIPIPRAZOLE [Suspect]
     Active Substance: ARIPIPRAZOLE
     Route: 065
  89. CHLORPROMAZINE [Suspect]
     Active Substance: CHLORPROMAZINE
     Indication: Schizophrenia
     Dosage: 75 MILLIGRAM
     Route: 065
  90. CHLORPROMAZINE [Suspect]
     Active Substance: CHLORPROMAZINE
     Dosage: 75 MILLIGRAM
     Route: 065
  91. CHLORPROMAZINE [Suspect]
     Active Substance: CHLORPROMAZINE
     Dosage: 75 MILLIGRAM
     Route: 065
  92. CHLORPROMAZINE [Suspect]
     Active Substance: CHLORPROMAZINE
     Dosage: 75 MILLIGRAM
     Route: 065
  93. CHLORPROMAZINE [Suspect]
     Active Substance: CHLORPROMAZINE
     Dosage: 75 MILLIGRAM
     Route: 065
  94. CHLORPROMAZINE [Suspect]
     Active Substance: CHLORPROMAZINE
     Dosage: 75 MILLIGRAM
     Route: 065
  95. CHLORPROMAZINE [Suspect]
     Active Substance: CHLORPROMAZINE
     Dosage: 75 MILLIGRAM
     Route: 065
  96. RISPERIDONE [Suspect]
     Active Substance: RISPERIDONE
     Indication: Schizophrenia
     Dosage: 1 MILLIGRAM, QD
     Route: 065
  97. RISPERIDONE [Suspect]
     Active Substance: RISPERIDONE
     Dosage: 6 MILLIGRAM, QD  (3 MILLIGRAM, BID)
     Route: 065
  98. RISPERIDONE [Suspect]
     Active Substance: RISPERIDONE
     Dosage: 4 MILLIGRAM, QD
     Route: 065
  99. RISPERIDONE [Suspect]
     Active Substance: RISPERIDONE
     Dosage: 4 MILLIGRAM, QD (2 MILLIGRAM, BID )
     Route: 065
  100. RISPERIDONE [Suspect]
     Active Substance: RISPERIDONE
     Dosage: 1 GRAM, QD
     Route: 065
  101. RISPERIDONE [Suspect]
     Active Substance: RISPERIDONE
     Dosage: 6 MILLIGRAM, QD (3 MG, 2X/DAY
     Route: 065
  102. RISPERIDONE [Suspect]
     Active Substance: RISPERIDONE
     Dosage: 4 MG, QD
     Route: 065
  103. RISPERIDONE [Suspect]
     Active Substance: RISPERIDONE
     Dosage: 1 GRAM, QD
     Route: 065
  104. RISPERIDONE [Suspect]
     Active Substance: RISPERIDONE
     Dosage: 4 MILLIGRAM, QD (2 MILLIGRAM, BID )
     Route: 065
  105. RISPERIDONE [Suspect]
     Active Substance: RISPERIDONE
     Dosage: 1 MILLIGRAM, QD
     Route: 065
  106. RISPERIDONE [Suspect]
     Active Substance: RISPERIDONE
     Dosage: 4 MILLIGRAM, QD
     Route: 065
  107. RISPERIDONE [Suspect]
     Active Substance: RISPERIDONE
     Dosage: 4 MILLIGRAM, QD
     Route: 065
  108. PACLITAXEL [Suspect]
     Active Substance: PACLITAXEL
     Indication: Breast cancer metastatic
     Dosage: 120 MILLIGRAM, QW/23-DEC-2015
     Route: 042
     Dates: start: 20151223, end: 20151223
  109. PACLITAXEL [Suspect]
     Active Substance: PACLITAXEL
     Dosage: 150 MILLIGRAM, QW, START DATE: 11-NOV-2015
     Route: 042
     Dates: start: 20151111, end: 20151222
  110. MORPHINE [Suspect]
     Active Substance: MORPHINE
     Indication: Product used for unknown indication
     Dosage: 30 MILLIGRAM, BID/SEP-2015(EVERY 0.5 DAY)
     Route: 048
  111. DOCETAXEL [Suspect]
     Active Substance: DOCETAXEL
     Indication: Breast cancer metastatic
     Route: 065
  112. DOCETAXEL [Suspect]
     Active Substance: DOCETAXEL
     Dosage: 110 MILLIGRAM, Q3W (CUMULATIVE DOSE: 324.98)/30-SEP-2015
     Route: 042
     Dates: start: 20150930, end: 20151021
  113. DOCETAXEL [Suspect]
     Active Substance: DOCETAXEL
     Route: 065
     Dates: start: 20151222
  114. ZUCLOPENTHIXOL [Suspect]
     Active Substance: ZUCLOPENTHIXOL
     Indication: Product used for unknown indication
     Dosage: 400 MG, CYCLIC (400 MG, BIWEEKLY)/04-FEB-2003
     Route: 065
     Dates: start: 20030204, end: 20040217
  115. ZUCLOPENTHIXOL [Suspect]
     Active Substance: ZUCLOPENTHIXOL
     Dosage: 400 MILLIGRAM, WEEKLY/17-FEB-2004
     Route: 065
     Dates: start: 20040217, end: 20040601
  116. ZUCLOPENTHIXOL [Suspect]
     Active Substance: ZUCLOPENTHIXOL
     Dosage: 800 MILLIGRAM, QW (400 MG, 2/W)/04-FEB-2003
     Route: 065
     Dates: start: 20030204, end: 20040217
  117. ZUCLOPENTHIXOL [Suspect]
     Active Substance: ZUCLOPENTHIXOL
     Dosage: 400 MILLIGRAM, BIWEEKLY (CYCLE)/01-JUN-2004
     Route: 065
     Dates: start: 20040601, end: 20040601
  118. ZUCLOPENTHIXOL [Suspect]
     Active Substance: ZUCLOPENTHIXOL
     Dosage: 400 MILLIGRAM, EVERY WEEK
     Route: 065
  119. ZUCLOPENTHIXOL [Suspect]
     Active Substance: ZUCLOPENTHIXOL
     Dosage: 400 MILLIGRAM, BIWEEKLY (CYCLE)/04-FEB-2003
     Route: 065
     Dates: start: 20030204, end: 20040217
  120. ZUCLOPENTHIXOL [Suspect]
     Active Substance: ZUCLOPENTHIXOL
     Dosage: 300 MG, WEEKLY/18-OCT-2009
     Route: 030
     Dates: start: 20091018
  121. ZUCLOPENTHIXOL [Suspect]
     Active Substance: ZUCLOPENTHIXOL
     Dosage: 400 MG, CYCLIC (400 MG, BIWEEKLY)/01-JUN-2004
     Route: 065
     Dates: start: 20040601
  122. ZUCLOPENTHIXOL [Suspect]
     Active Substance: ZUCLOPENTHIXOL
     Dosage: 800 MILLIGRAM, QW (400 MG, 2/W)/01-JUN-2004
     Route: 065
     Dates: start: 20040601, end: 20041018
  123. ZUCLOPENTHIXOL [Suspect]
     Active Substance: ZUCLOPENTHIXOL
     Dosage: 400 MILLIGRAM, BIWEEKLY, CYCLE/18-OCT-2004
     Route: 065
     Dates: start: 20041018, end: 20041018
  124. ZUCLOPENTHIXOL [Suspect]
     Active Substance: ZUCLOPENTHIXOL
     Dosage: 300 MILLIGRAM, QD (300 MILLIGRAM I.M WEEKLY)/09-OCT-2009
     Route: 030
     Dates: end: 20041018
  125. ZUCLOPENTHIXOL [Suspect]
     Active Substance: ZUCLOPENTHIXOL
     Dosage: 400 MILLIGRAM, BIWEEKLY/18-OCT-2009
     Route: 030
     Dates: end: 20041018
  126. ZUCLOPENTHIXOL [Suspect]
     Active Substance: ZUCLOPENTHIXOL
     Dosage: 400 MG, CYCLIC (400 MG, BIWEEKLY)/04-FEB-2003
     Route: 065
     Dates: start: 20030204, end: 20040217
  127. ZUCLOPENTHIXOL [Suspect]
     Active Substance: ZUCLOPENTHIXOL
     Route: 065
  128. ZUCLOPENTHIXOL [Suspect]
     Active Substance: ZUCLOPENTHIXOL
     Dosage: 400 MILLIGRAM, BIWEEKLY (CYCLE)/01/JUN/2004
     Route: 065
     Dates: start: 20040601, end: 20041018
  129. ZUCLOPENTHIXOL [Suspect]
     Active Substance: ZUCLOPENTHIXOL
     Dosage: 400 MG, CYCLIC (400 MG, BIWEEKLY)/01/JUN/2004
     Route: 065
     Dates: start: 20040601, end: 20041018
  130. PERTUZUMAB [Suspect]
     Active Substance: PERTUZUMAB
     Indication: Breast cancer metastatic
     Dosage: 420 MILLIGRAM, Q3W (CUMULATIVE DOSE: 820.83 MG)
     Route: 042
     Dates: start: 20151021
  131. PERTUZUMAB [Suspect]
     Active Substance: PERTUZUMAB
     Dosage: 840 MILLIGRAM, Q3W (CUMULATIVE DOSE: 2481.6667 MG)/30-SEP-2015
     Route: 042
  132. TRASTUZUMAB [Suspect]
     Active Substance: TRASTUZUMAB
     Indication: Breast cancer metastatic
     Dosage: 609 MILLIGRAM, Q3W (1799.20 MG)/30-SEP-2015
     Route: 042
     Dates: start: 20150930
  133. ZUCLOPENTHIXOL [Suspect]
     Active Substance: ZUCLOPENTHIXOL
     Indication: Product used for unknown indication
     Dosage: 400 MILLIGRAM, CYCLICAL (400 MG, BIWEEKLY
     Route: 065
     Dates: start: 20040217, end: 20040601
  134. CALCIUM\CHOLECALCIFEROL [Concomitant]
     Active Substance: CALCIUM\CHOLECALCIFEROL
     Indication: Product used for unknown indication
  135. CHLORPHENIRAMINE MALEATE [Concomitant]
     Active Substance: CHLORPHENIRAMINE MALEATE
     Indication: Product used for unknown indication
     Dosage: 10 MILLIGRAM, QW (CUMULATIVE DOSE 28.57)
     Route: 058
     Dates: start: 20151111
  136. DENOSUMAB [Concomitant]
     Active Substance: DENOSUMAB
     Indication: Metastases to bone
     Dosage: 120 MILLIGRAM, EVERY 9 WEEKS/30-SEP-2015120 MG,(CUMULATIVE DOSE: 118.174)
     Route: 058
     Dates: start: 20150930
  137. MORPHINE SULFATE [Concomitant]
     Active Substance: MORPHINE SULFATE
     Indication: Product used for unknown indication
     Dosage: 10 MILLIGRAM, PRN/SEP-2015
     Dates: start: 201509
  138. PIPERACILLIN SODIUM\TAZOBACTAM SODIUM [Concomitant]
     Active Substance: PIPERACILLIN SODIUM\TAZOBACTAM SODIUM
     Indication: Febrile neutropenia
     Dates: start: 20151121, end: 201511
  139. CALCIUM\CHOLECALCIFEROL [Concomitant]
     Active Substance: CALCIUM\CHOLECALCIFEROL
     Indication: Product used for unknown indication
     Dosage: 2 DOSAGE FORM, QD
     Route: 048
  140. PREGABALIN [Concomitant]
     Active Substance: PREGABALIN
     Indication: Product used for unknown indication
     Dosage: 75 MILLIGRAM, BID/SEP-2015(75 MG, EVERY 0.5 DAY)
     Route: 048
     Dates: start: 201509
  141. PREGABALIN [Concomitant]
     Active Substance: PREGABALIN
     Dosage: 75 MILLIGRAM, BID/SEP-2015(75 MG, EVERY 0.5 DAY)
     Route: 048
  142. RANITIDINE [Concomitant]
     Active Substance: RANITIDINE
     Indication: Gastrooesophageal reflux disease
     Dosage: 50 MILLIGRAM, QW,(CUMULATIVE DOSE: 142.857)
     Route: 058
     Dates: start: 20151111
  143. MIRTAZAPINE [Concomitant]
     Active Substance: MIRTAZAPINE
     Indication: Product used for unknown indication
     Dosage: 15 MILLIGRAM, QD/OCT-2015
     Dates: start: 201510
  144. LEVOFLOXACIN [Concomitant]
     Active Substance: LEVOFLOXACIN
     Indication: Febrile neutropenia
     Dosage: 500 MILLIGRAM, QD,500 MG, QD(CUMULATIVE DOSE: 3000)
     Route: 048
     Dates: start: 20151125
  145. ACETAMINOPHEN [Concomitant]
     Active Substance: ACETAMINOPHEN
     Indication: Pain
     Dosage: 500 MILLIGRAM/27-JAN-2015(500 MG (DOSE FORM 245)
     Route: 048
     Dates: start: 20150127
  146. ACETAMINOPHEN [Concomitant]
     Active Substance: ACETAMINOPHEN
     Dosage: 500 MILLIGRAM/27-JAN-2015(500 MG (DOSE FORM 245)
     Route: 048
     Dates: start: 20150127
  147. AMOXICILLIN\CLAVULANATE POTASSIUM [Concomitant]
     Active Substance: AMOXICILLIN\CLAVULANATE POTASSIUM
     Indication: Febrile neutropenia
     Dosage: 625 MILLIGRAM (EVERY 0.33 DAYS, CUMULATIVE DOSE: 16875)
     Route: 048
     Dates: start: 20151122, end: 20151122
  148. GENTAMICIN [Concomitant]
     Active Substance: GENTAMICIN
     Indication: Febrile neutropenia
     Dosage: UNK/START DATE: 21-NOV-2015
     Route: 042
     Dates: start: 20151121, end: 201511
  149. PIPERACILLIN SODIUM\TAZOBACTAM SODIUM [Concomitant]
     Active Substance: PIPERACILLIN SODIUM\TAZOBACTAM SODIUM
     Indication: Febrile neutropenia
  150. MORPHINE SULFATE [Concomitant]
     Active Substance: MORPHINE SULFATE
     Indication: Product used for unknown indication
     Dosage: 10 MILLIGRAM, PRN/SEP-2015
  151. AMOXICILLIN\CLAVULANATE POTASSIUM [Concomitant]
     Active Substance: AMOXICILLIN\CLAVULANATE POTASSIUM
     Indication: Febrile neutropenia
     Route: 048
     Dates: start: 20151122, end: 20151122
  152. MORPHINE [Concomitant]
     Active Substance: MORPHINE
     Indication: Product used for unknown indication
     Dosage: 30 MILLIGRAM, BID/SEP-2015(EVERY 0.5 DAY)
     Route: 048
     Dates: start: 201509

REACTIONS (28)
  - Disease progression [Fatal]
  - Schizophrenia [Not Recovered/Not Resolved]
  - Hospitalisation [Unknown]
  - Psychotic disorder [Recovered/Resolved]
  - Delusion of grandeur [Unknown]
  - Affective disorder [Recovered/Resolved]
  - Neutrophil count increased [Recovered/Resolved]
  - Neutropenia [Recovered/Resolved]
  - Leukopenia [Recovered/Resolved with Sequelae]
  - Hallucination, auditory [Unknown]
  - Extrapyramidal disorder [Unknown]
  - Platelet count decreased [Not Recovered/Not Resolved]
  - Lymphocyte count decreased [Unknown]
  - Fatigue [Not Recovered/Not Resolved]
  - Lymphocyte count abnormal [Unknown]
  - Nasal discomfort [Recovered/Resolved]
  - Neuropathy peripheral [Recovered/Resolved]
  - Alopecia [Recovered/Resolved]
  - Mucosal inflammation [Recovered/Resolved]
  - Dyspepsia [Recovered/Resolved]
  - Diarrhoea [Recovered/Resolved]
  - Nausea [Recovered/Resolved]
  - Cellulitis [Recovered/Resolved]
  - Incorrect dose administered [Unknown]
  - Off label use [Unknown]
  - SARS-CoV-2 test positive [Recovered/Resolved]
  - Seizure [Unknown]
  - Off label use [Unknown]

NARRATIVE: CASE EVENT DATE: 20111101
